FAERS Safety Report 17584251 (Version 2)
Quarter: 2020Q2

REPORT INFORMATION
  Report Type: Spontaneous
  Country: BR (occurrence: BR)
  Receive Date: 20200326
  Receipt Date: 20200429
  Transmission Date: 20200713
  Serious: Yes (Disabling, Other)
  Sender: FDA-Public Use
  Company Number: BR-NOVOPROD-719430

PATIENT
  Sex: Female
  Weight: 145 kg

DRUGS (5)
  1. METFORMINE [METFORMIN HYDROCHLORIDE] [Concomitant]
     Active Substance: METFORMIN HYDROCHLORIDE
     Indication: TYPE 2 DIABETES MELLITUS
     Dosage: 500 MG
  2. ENALAPRIL MALEATE. [Concomitant]
     Active Substance: ENALAPRIL MALEATE
     Indication: HYPERTENSION
     Dosage: 10 MG
     Route: 065
  3. EZETIMIBA/SIMVASTATINA [Concomitant]
     Indication: HYPERCHOLESTEROLAEMIA
     Dosage: 10/20 MG
  4. NOVOMIX 30 PENFILL [Suspect]
     Active Substance: INSULIN ASPART
     Indication: TYPE 2 DIABETES MELLITUS
     Dosage: 40 IU IN THE MORNING AND 20 IU AT NIGHT
     Route: 065
  5. INDAPAMIDE. [Concomitant]
     Active Substance: INDAPAMIDE
     Indication: TYPE 2 DIABETES MELLITUS
     Dosage: 1.5 MG
     Route: 065

REACTIONS (1)
  - Osteoarthritis [Not Recovered/Not Resolved]
